FAERS Safety Report 18502000 (Version 6)
Quarter: 2025Q1

REPORT INFORMATION
  Report Type: Spontaneous
  Country: US (occurrence: US)
  Receive Date: 20201113
  Receipt Date: 20250211
  Transmission Date: 20250409
  Serious: Yes (Disabling, Other)
  Sender: PFIZER
  Company Number: US-PFIZER INC-2020304572

PATIENT
  Age: 30 Year
  Sex: Female

DRUGS (4)
  1. SOMAVERT [Suspect]
     Active Substance: PEGVISOMANT
     Dates: start: 20130623
  2. SOMAVERT [Suspect]
     Active Substance: PEGVISOMANT
     Dates: start: 20190915
  3. SOMAVERT [Suspect]
     Active Substance: PEGVISOMANT
     Dates: start: 20200914
  4. SOMAVERT [Suspect]
     Active Substance: PEGVISOMANT
     Dosage: INJECT 20 MG UNDER THE SKIN DAILY
     Route: 058

REACTIONS (8)
  - Blindness [Not Recovered/Not Resolved]
  - Product dose omission issue [Unknown]
  - Dizziness [Unknown]
  - Fatigue [Unknown]
  - Pain [Unknown]
  - Agitation [Unknown]
  - Injection site pain [Not Recovered/Not Resolved]
  - Injection site bruising [Not Recovered/Not Resolved]

NARRATIVE: CASE EVENT DATE: 20240501
